FAERS Safety Report 9193588 (Version 1)
Quarter: 2013Q1

REPORT INFORMATION
  Report Type: Spontaneous
  Country: CA (occurrence: CA)
  Receive Date: 20130327
  Receipt Date: 20130327
  Transmission Date: 20140127
  Serious: Yes (Death)
  Sender: FDA-Public Use
  Company Number: CA-GLAXOSMITHKLINE-A0940563A

PATIENT
  Age: 54 Year
  Sex: Female

DRUGS (9)
  1. TYKERB [Suspect]
     Indication: BREAST CANCER METASTATIC
     Dosage: 1250MG PER DAY
     Route: 048
     Dates: start: 20110618
  2. XELODA [Concomitant]
     Dosage: 1500MG TWICE PER DAY
  3. AREDIA [Concomitant]
  4. STEMETIL [Concomitant]
  5. IMODIUM [Concomitant]
  6. GRAVOL [Concomitant]
     Indication: NAUSEA
     Dosage: 50MG AS REQUIRED
  7. PREVACID [Concomitant]
  8. INDOMETHACIN [Concomitant]
  9. NAPROXEN [Concomitant]

REACTIONS (10)
  - Death [Fatal]
  - Diarrhoea [Recovered/Resolved]
  - Rash [Recovered/Resolved]
  - Insomnia [Not Recovered/Not Resolved]
  - Nausea [Not Recovered/Not Resolved]
  - Fatigue [Not Recovered/Not Resolved]
  - Pain in extremity [Recovered/Resolved]
  - Musculoskeletal chest pain [Recovered/Resolved]
  - Inflammation [Unknown]
  - Radiculitis brachial [Unknown]
